FAERS Safety Report 7478311-5 (Version None)
Quarter: 2011Q2

REPORT INFORMATION
  Report Type: 
  Country: None (occurrence: None)
  Receive Date: 20110513
  Receipt Date: 20110506
  Transmission Date: 20111010
  Serious: Yes (Death, Life-Threatening, Hospitalization, Other)
  Sender: FDA-Public Use
  Company Number: FR-BAYER-200943196GPV

PATIENT
  Age: 77 Year
  Sex: Male
  Weight: 69 kg

DRUGS (9)
  1. ERYTHROMYCIN [Concomitant]
     Indication: RASH
     Dosage: 1 APPLICATION
     Dates: start: 20091210, end: 20091214
  2. OMEPRAZOLE [Concomitant]
     Indication: PROPHYLAXIS
     Dosage: 40 MG (DAILY DOSE), ,
     Dates: start: 20091214
  3. PAPULEX [Concomitant]
     Indication: RASH
     Dosage: APPLICATIONS
     Dates: start: 20091210, end: 20091214
  4. NEXAVAR [Suspect]
     Indication: HEPATIC NEOPLASM MALIGNANT
     Dosage: 150 MG, QD
     Route: 048
     Dates: start: 20091126, end: 20091214
  5. AVLOCARDYL [Concomitant]
     Indication: PORTAL HYPERTENSION
     Dosage: 20 MG, QD
     Route: 048
     Dates: start: 20090825, end: 20091216
  6. NEXAVAR [Suspect]
     Indication: HEPATIC NEOPLASM MALIGNANT
     Dosage: 400 MG, BID
     Route: 048
     Dates: start: 20091126, end: 20091213
  7. GLUCOSE [Concomitant]
     Dosage: UNK
     Dates: start: 20091214, end: 20091219
  8. MOVIPREP [Concomitant]
     Indication: CONSTIPATION
     Dosage: 6 SACHETS PRN
     Dates: start: 20091210, end: 20091214
  9. BICARBONAT SOD [Concomitant]
     Indication: LACTIC ACIDOSIS
     Dosage: 500 ML (DAILY DOSE), ,
     Dates: start: 20091217, end: 20091217

REACTIONS (6)
  - HEPATIC FAILURE [None]
  - RENAL FAILURE [None]
  - SEPSIS [None]
  - GENERAL PHYSICAL HEALTH DETERIORATION [None]
  - GASTROINTESTINAL HAEMORRHAGE [None]
  - THROMBOCYTOPENIA [None]
